FAERS Safety Report 10905874 (Version 1)
Quarter: 2015Q1

REPORT INFORMATION
  Report Type: Spontaneous
  Country: AU (occurrence: AU)
  Receive Date: 20150311
  Receipt Date: 20150311
  Transmission Date: 20150721
  Serious: Yes (Other)
  Sender: FDA-Public Use
  Company Number: AU-WATSON-2015-04517

PATIENT
  Age: 14 Year
  Sex: Male

DRUGS (1)
  1. PREDNISOLONE (UNKNOWN) [Suspect]
     Active Substance: PREDNISOLONE
     Indication: HODGKIN^S DISEASE
     Dosage: 75 MG, DAILY
     Route: 065

REACTIONS (1)
  - Cushing^s syndrome [Unknown]
